FAERS Safety Report 11489015 (Version 1)
Quarter: 2015Q3

REPORT INFORMATION
  Report Type: Spontaneous
  Country: US (occurrence: US)
  Receive Date: 20150910
  Receipt Date: 20150910
  Transmission Date: 20151125
  Serious: No
  Sender: FDA-Public Use
  Company Number: US-ROCHE-1518889

PATIENT
  Sex: Male

DRUGS (3)
  1. PEGASYS [Suspect]
     Active Substance: PEGINTERFERON ALFA-2A
     Indication: HEPATITIS C
     Dosage: 3 MONTHS
     Route: 065
     Dates: end: 20140901
  2. SOVALDI [Suspect]
     Active Substance: SOFOSBUVIR
     Indication: HEPATITIS C
     Route: 065
     Dates: end: 20140901
  3. RIBASPHERE [Suspect]
     Active Substance: RIBAVIRIN
     Indication: HEPATITIS C
     Route: 065

REACTIONS (6)
  - Pallor [Not Recovered/Not Resolved]
  - Feeding disorder [Unknown]
  - Mental status changes [Unknown]
  - Emotional disorder [Unknown]
  - Skin exfoliation [Unknown]
  - Skin hypopigmentation [Not Recovered/Not Resolved]
